FAERS Safety Report 9433937 (Version 1)
Quarter: 2013Q3

REPORT INFORMATION
  Report Type: Report from Study
  Country: AR (occurrence: AR)
  Receive Date: 20130801
  Receipt Date: 20130801
  Transmission Date: 20140515
  Serious: Yes (Other)
  Sender: FDA-Public Use
  Company Number: AR-ROCHE-1255524

PATIENT
  Sex: Male

DRUGS (4)
  1. RANIBIZUMAB [Suspect]
     Indication: MACULOPATHY
     Route: 050
     Dates: start: 2011
  2. RANIBIZUMAB [Suspect]
     Route: 050
  3. RANIBIZUMAB [Suspect]
     Route: 050
  4. INSULIN [Concomitant]

REACTIONS (4)
  - Blindness [Not Recovered/Not Resolved]
  - Maculopathy [Unknown]
  - Drug ineffective [Unknown]
  - Disease progression [Unknown]
